FAERS Safety Report 19261431 (Version 1)
Quarter: 2021Q2

REPORT INFORMATION
  Report Type: Report from Study
  Country: US (occurrence: US)
  Receive Date: 20210515
  Receipt Date: 20210515
  Transmission Date: 20210717
  Serious: Yes (Other)
  Sender: FDA-Public Use
  Company Number: US-AUROBINDO-AUR-APL-2021-019125

PATIENT
  Age: 77 Year
  Sex: Female

DRUGS (1)
  1. TRIMETHOPRIM+SULFAMETHOXAZOLE [Suspect]
     Active Substance: SULFAMETHOXAZOLE\TRIMETHOPRIM
     Indication: SERRATIA INFECTION
     Dosage: 800MG?160MG, TWO TIMES A DAY
     Route: 048

REACTIONS (2)
  - Gastrointestinal haemorrhage [Unknown]
  - International normalised ratio increased [Unknown]
